FAERS Safety Report 4813094-6 (Version None)
Quarter: 2005Q4

REPORT INFORMATION
  Report Type: 
  Country: None (occurrence: None)
  Receive Date: 20051028
  Receipt Date: 20051021
  Transmission Date: 20060501
  Serious: Yes (Other)
  Sender: FDA-Public Use
  Company Number: US-BRISTOL-MYERS SQUIBB COMPANY-13153242

PATIENT
  Age: 66 Year
  Sex: Female

DRUGS (3)
  1. ERBITUX [Suspect]
     Indication: COLORECTAL CANCER
     Dosage: THERAPY START DATE 28-JUN-2005
     Route: 042
     Dates: start: 20050101, end: 20050101
  2. LOPRESSOR [Concomitant]
  3. WARFARIN [Concomitant]

REACTIONS (2)
  - PURPURA [None]
  - VASCULITIS [None]
